FAERS Safety Report 5120318-7 (Version None)
Quarter: 2006Q4

REPORT INFORMATION
  Report Type: 
  Country: None (occurrence: None)
  Receive Date: 20061004
  Receipt Date: 20060921
  Transmission Date: 20070319
  Serious: Yes (Other)
  Sender: FDA-Public Use
  Company Number: PHNR2006AU01321

PATIENT
  Sex: Female

DRUGS (7)
  1. ACETAMINOPHEN W/ CODEINE [Concomitant]
     Dates: start: 20060101, end: 20060101
  2. VALIUM [Concomitant]
     Dates: start: 20060101, end: 20060101
  3. TOFRANIL [Concomitant]
     Dosage: 4 TABLETS
  4. TOFRANIL [Concomitant]
     Dosage: 3 TABLETS
  5. TEGRETOL [Suspect]
     Indication: TRIGEMINAL NEURALGIA
     Dosage: UNK, UNK
     Dates: start: 20060701
  6. TEGRETOL [Suspect]
     Dates: start: 20050101, end: 20050101
  7. TEGRETOL [Suspect]
     Dosage: 50 MG, QHS (HALF A 100MG TABLET AT NIGHT)
     Route: 048
     Dates: start: 20060920

REACTIONS (3)
  - DEPRESSED MOOD [None]
  - DRY THROAT [None]
  - MENTAL STATUS CHANGES [None]
